FAERS Safety Report 9276175 (Version 1)
Quarter: 2012Q4

REPORT INFORMATION
  Report Type: Spontaneous
  Country: JP (occurrence: None)
  Receive Date: 20121109
  Receipt Date: 20121109
  Transmission Date: 20130627
  Serious: Yes (Other)
  Sender: FDA-Public Use
  Company Number: 2012S1000706

PATIENT
  Age: 84 Year
  Sex: Male

DRUGS (2)
  1. CUBICIN (DAPTOMYCIN) [Suspect]
     Indication: POSTOPERATIVE WOUND INFECTION
     Route: 042
     Dates: start: 20120810
  2. VANCOMYCIN [Concomitant]
     Route: 042
     Dates: start: 20120810

REACTIONS (4)
  - Henoch-Schonlein purpura [None]
  - Renal impairment [None]
  - Eosinophil count increased [None]
  - Rash [None]
